FAERS Safety Report 13207107 (Version 1)
Quarter: 2017Q1

REPORT INFORMATION
  Report Type: Spontaneous
  Country: US (occurrence: US)
  Receive Date: 20170209
  Receipt Date: 20170209
  Transmission Date: 20170428
  Serious: Yes (Disabling)
  Sender: FDA-Public Use
  Company Number: None

PATIENT
  Age: 53 Year
  Sex: Female
  Weight: 46.35 kg

DRUGS (1)
  1. KENALOG [Suspect]
     Active Substance: TRIAMCINOLONE ACETONIDE
     Indication: ARTHROPOD BITE
     Dosage: ?          QUANTITY:1 INJECTION(S);OTHER ROUTE:INJECTED IN BUTTOCK?
     Dates: start: 20160723

REACTIONS (4)
  - Pain in extremity [None]
  - Injection site discolouration [None]
  - Musculoskeletal pain [None]
  - Injection site atrophy [None]

NARRATIVE: CASE EVENT DATE: 20160723
